FAERS Safety Report 4524592-7 (Version None)
Quarter: 2004Q4

REPORT INFORMATION
  Report Type: 
  Country: None (occurrence: None)
  Receive Date: 20041117
  Receipt Date: 20040629
  Transmission Date: 20050328
  Serious: Yes (Life-Threatening)
  Sender: FDA-Public Use
  Company Number: US-JNJFOC-20040705601

PATIENT
  Age: 78 Year
  Sex: Female
  Weight: 90.7194 kg

DRUGS (12)
  1. LEVOFLOXACIN [Suspect]
     Indication: LUNG INFILTRATION
     Dosage: 250 MG, 1 IN 1 DAY, ORAL
     Route: 048
     Dates: start: 20020105, end: 20020107
  2. ACTOS [Concomitant]
  3. ASPIRIN [Concomitant]
  4. CELEXA [Concomitant]
  5. DETROL LA [Concomitant]
  6. DIGOXIN [Concomitant]
  7. INSULIN [Concomitant]
  8. LEVOTHROID [Concomitant]
  9. NOLVADEX [Concomitant]
  10. PLAVIX [Concomitant]
  11. PREVACID [Concomitant]
  12. ZOCOR [Concomitant]

REACTIONS (2)
  - ELECTROCARDIOGRAM QT PROLONGED [None]
  - TORSADE DE POINTES [None]
